FAERS Safety Report 19692577 (Version 1)
Quarter: 2021Q3

REPORT INFORMATION
  Report Type: Spontaneous
  Country: US (occurrence: US)
  Receive Date: 20210812
  Receipt Date: 20210812
  Transmission Date: 20211014
  Serious: No
  Sender: FDA-Public Use
  Company Number: US-ASSERTIO THERAPEUTICS, INC.-US-2020AST000279

PATIENT
  Sex: Female

DRUGS (2)
  1. CAMBIA [Suspect]
     Active Substance: DICLOFENAC POTASSIUM
     Indication: HEADACHE
     Dosage: 50 MG, PRN
     Dates: start: 201908
  2. CAMBIA [Suspect]
     Active Substance: DICLOFENAC POTASSIUM
     Indication: MIGRAINE WITHOUT AURA
     Dosage: MIX 1 PACKET WITH 1?2 OUNCES OF WATER AND DRINK AS A SINGLE DOSE EVERY 8 HOURS, PRN, MAX 3 DAYS/WEEK
     Route: 048

REACTIONS (4)
  - Product contamination physical [Unknown]
  - Product solubility abnormal [Unknown]
  - Product taste abnormal [Unknown]
  - Drug ineffective for unapproved indication [Unknown]
